FAERS Safety Report 4943871-2 (Version None)
Quarter: 2006Q1

REPORT INFORMATION
  Report Type: 
  Country: None (occurrence: None)
  Receive Date: 20060310
  Receipt Date: 20060228
  Transmission Date: 20060701
  Serious: Yes (Other)
  Sender: FDA-Public Use
  Company Number: GBWYE437628FEB06

PATIENT
  Age: 75 Year
  Sex: Male

DRUGS (5)
  1. EFFEXOR [Suspect]
  2. LYRICA [Suspect]
     Dosage: SEE IMAGE
     Route: 048
     Dates: end: 20051201
  3. LYRICA [Suspect]
     Dosage: SEE IMAGE
     Route: 048
     Dates: start: 20060101
  4. LYRICA [Suspect]
     Dosage: SEE IMAGE
     Route: 048
     Dates: start: 20060101
  5. OXYCONTIN [Concomitant]

REACTIONS (3)
  - COORDINATION ABNORMAL [None]
  - FALL [None]
  - VERTIGO [None]
